FAERS Safety Report 7446143-X (Version None)
Quarter: 2011Q2

REPORT INFORMATION
  Report Type: 
  Country: None (occurrence: None)
  Receive Date: 20110429
  Receipt Date: 20110420
  Transmission Date: 20111010
  Serious: Yes (Other)
  Sender: FDA-Public Use
  Company Number: B0711026A

PATIENT
  Age: 24 Year
  Sex: Male

DRUGS (6)
  1. POTASSIUM + MAGNESIUM ASPARTATE [Concomitant]
     Dates: start: 20110323, end: 20110323
  2. DIAMMONIUM [Concomitant]
  3. CHINESE MEDICINE [Concomitant]
  4. HEPTODIN [Suspect]
     Indication: HEPATITIS B
     Dosage: .1G PER DAY
     Route: 048
     Dates: start: 20110323, end: 20110323
  5. GLUTATHIONE [Concomitant]
     Dates: start: 20110323, end: 20110323
  6. URSODIOL [Concomitant]
     Dates: start: 20110323, end: 20110323

REACTIONS (5)
  - BLOOD BILIRUBIN INCREASED [None]
  - CHEST DISCOMFORT [None]
  - CHILLS [None]
  - TRANSAMINASES INCREASED [None]
  - BODY TEMPERATURE INCREASED [None]
